FAERS Safety Report 6431338-4 (Version None)
Quarter: 2009Q4

REPORT INFORMATION
  Report Type: 
  Country: None (occurrence: None)
  Receive Date: 20091106
  Receipt Date: 20091029
  Transmission Date: 20100525
  Serious: Yes (Other)
  Sender: FDA-Public Use
  Company Number: CA-ABBOTT-09P-028-0605913-01

PATIENT
  Sex: Female

DRUGS (3)
  1. HUMIRA [Suspect]
     Indication: COLITIS ULCERATIVE
     Route: 058
     Dates: start: 20090226, end: 20090910
  2. ATACAND HCT [Concomitant]
     Indication: HYPERTENSION
     Dates: start: 20070101
  3. CALCIUM [Concomitant]
     Indication: OSTEOPENIA
     Dates: start: 20041001, end: 20090409

REACTIONS (1)
  - BREAST CANCER [None]
